FAERS Safety Report 20796934 (Version 1)
Quarter: 2022Q2

REPORT INFORMATION
  Report Type: Spontaneous
  Country: US (occurrence: None)
  Receive Date: 20220506
  Receipt Date: 20220506
  Transmission Date: 20220721
  Serious: Yes (Other)
  Sender: FDA-Public Use
  Company Number: None

PATIENT
  Age: 69 Year
  Sex: Female
  Weight: 58.5 kg

DRUGS (4)
  1. XOLAIR [Suspect]
     Active Substance: OMALIZUMAB
     Indication: Urticaria
     Dosage: OTHER FREQUENCY : 4 WEEK INTERVALS;?
     Dates: start: 20220505, end: 20220505
  2. VITAMINS [Concomitant]
     Active Substance: VITAMINS
  3. CALCIUM [Concomitant]
     Active Substance: CALCIUM
  4. LUTEIN [Concomitant]
     Active Substance: LUTEIN

REACTIONS (7)
  - Urticaria [None]
  - Condition aggravated [None]
  - Pruritus [None]
  - Scratch [None]
  - Palpitations [None]
  - Tremor [None]
  - Feeling cold [None]

NARRATIVE: CASE EVENT DATE: 20220505
